FAERS Safety Report 13663710 (Version 4)
Quarter: 2018Q4

REPORT INFORMATION
  Report Type: Spontaneous
  Country: US (occurrence: US)
  Receive Date: 20170619
  Receipt Date: 20181203
  Transmission Date: 20190204
  Serious: No
  Sender: FDA-Public Use
  Company Number: US-BIOGEN-2017BI00416445

PATIENT
  Age: 61 Year
  Sex: Female

DRUGS (2)
  1. TECFIDERA [Suspect]
     Active Substance: DIMETHYL FUMARATE
     Route: 065
     Dates: start: 20170308, end: 20171101
  2. TECFIDERA [Suspect]
     Active Substance: DIMETHYL FUMARATE
     Indication: MULTIPLE SCLEROSIS
     Route: 048
     Dates: start: 20170308, end: 20180301

REACTIONS (7)
  - Carpal tunnel syndrome [Unknown]
  - Osteoporosis [Unknown]
  - Radiculopathy [Unknown]
  - White blood cell count decreased [Unknown]
  - Intervertebral disc protrusion [Unknown]
  - Contusion [Not Recovered/Not Resolved]
  - Laboratory test abnormal [Unknown]

NARRATIVE: CASE EVENT DATE: 20170328
